FAERS Safety Report 11101266 (Version 3)
Quarter: 2015Q2

REPORT INFORMATION
  Report Type: Report from Study
  Country: CA (occurrence: CA)
  Receive Date: 20150508
  Receipt Date: 20150516
  Transmission Date: 20150821
  Serious: Yes (Hospitalization)
  Sender: FDA-Public Use
  Company Number: PHHY2015CA052361

PATIENT
  Age: 50 Year
  Sex: Male

DRUGS (1)
  1. SANDOSTATIN [Suspect]
     Active Substance: OCTREOTIDE ACETATE
     Indication: NEUROENDOCRINE TUMOUR
     Dosage: NK, ONCE/SINGLE (TEST DOSE)
     Route: 058
     Dates: start: 20150418, end: 20150418

REACTIONS (1)
  - Infection [Unknown]

NARRATIVE: CASE EVENT DATE: 201504
